FAERS Safety Report 8110205-4 (Version None)
Quarter: 2012Q1

REPORT INFORMATION
  Report Type: 
  Country: None (occurrence: None)
  Receive Date: 20120202
  Receipt Date: 20120126
  Transmission Date: 20120608
  Serious: No
  Sender: FDA-Public Use
  Company Number: US-AMGEN-USASP2011068772

PATIENT
  Age: 64 Year
  Sex: Female
  Weight: 69.841 kg

DRUGS (1)
  1. ENBREL [Suspect]
     Indication: PUSTULAR PSORIASIS
     Dosage: 25 MG, EVERY THREE DAYS
     Route: 058
     Dates: start: 20041223

REACTIONS (1)
  - INJECTION SITE PAIN [None]
